FAERS Safety Report 21781898 (Version 3)
Quarter: 2022Q4

REPORT INFORMATION
  Report Type: Report from Study
  Country: US (occurrence: US)
  Receive Date: 20221227
  Receipt Date: 20221230
  Transmission Date: 20230113
  Serious: No
  Sender: FDA-Public Use
  Company Number: US-002147023-NVSC2022US298923

PATIENT
  Age: 28 Year
  Sex: Female

DRUGS (1)
  1. KESIMPTA [Suspect]
     Active Substance: OFATUMUMAB
     Indication: Product used for unknown indication
     Dosage: 20 MG, QMO
     Route: 058
     Dates: start: 20221116

REACTIONS (4)
  - Paraesthesia [Recovered/Resolved]
  - Fatigue [Unknown]
  - Vertigo [Unknown]
  - Band sensation [Unknown]

NARRATIVE: CASE EVENT DATE: 20221222
